FAERS Safety Report 10904680 (Version 1)
Quarter: 2015Q1

REPORT INFORMATION
  Report Type: Spontaneous
  Country: PT (occurrence: None)
  Receive Date: 20150306
  Receipt Date: 20150306
  Transmission Date: 20150721
  Serious: Yes (Other)
  Sender: FDA-Public Use
  Company Number: FK201501040

PATIENT
  Age: 3 Year
  Sex: Male

DRUGS (4)
  1. GENTAMICIN (MANUFACTURER UNKNOWN) (GENTAMICIN) (GETAMICIN) [Suspect]
     Active Substance: GENTAMICIN
     Indication: PRODUCT USED FOR UNKNOWN INDICATION
     Route: 030
  2. COTRIMOXAZOLE [Concomitant]
     Active Substance: SULFAMETHOXAZOLE\TRIMETHOPRIM
  3. FLUCLOXACILLIN [Concomitant]
     Active Substance: FLUCLOXACILLIN
  4. RIFAMPICIN [Concomitant]
     Active Substance: RIFAMPIN

REACTIONS (1)
  - Jarisch-Herxheimer reaction [None]
